FAERS Safety Report 5019537-X (Version None)
Quarter: 2006Q2

REPORT INFORMATION
  Report Type: 
  Country: None (occurrence: None)
  Receive Date: 20060531
  Receipt Date: 20060515
  Transmission Date: 20061013
  Serious: Yes (Other)
  Sender: FDA-Public Use
  Company Number: CHNY2006CA01622

PATIENT
  Sex: Male

DRUGS (1)
  1. LONDON DRUGS TRANSDERMAL NICOTINE PATCH (NCH) (NICOTINE) TRANS-THERAPE [Suspect]
     Dosage: 21 MG, TRANSDERMAL
     Route: 062
     Dates: start: 20060509

REACTIONS (3)
  - LIMB INJURY [None]
  - MYOSITIS [None]
  - SHOULDER PAIN [None]
